FAERS Safety Report 4283893-0 (Version None)
Quarter: 2004Q1

REPORT INFORMATION
  Report Type: 
  Country: None (occurrence: None)
  Receive Date: 20040130
  Receipt Date: 20040120
  Transmission Date: 20041129
  Serious: Yes (Other)
  Sender: FDA-Public Use
  Company Number: US063612 HQWYE29909JAN04

PATIENT
  Age: 59 Year
  Sex: Female
  Weight: 59.5 kg

DRUGS (1)
  1. ENBREL [Suspect]
     Indication: RHEUMATOID ARTHRITIS
     Dosage: 25 MG, 2 IN 1 WEEKS, SC
     Route: 058
     Dates: start: 19990201, end: 20031201

REACTIONS (3)
  - CONVULSION [None]
  - INFECTION [None]
  - SYNCOPE [None]
